FAERS Safety Report 7703010-1 (Version None)
Quarter: 2011Q3

REPORT INFORMATION
  Report Type: 
  Country: None (occurrence: None)
  Receive Date: 20110823
  Receipt Date: 20110817
  Transmission Date: 20111222
  Serious: Yes (Death, Hospitalization)
  Sender: FDA-Public Use
  Company Number: US-JNJFOC-20110809142

PATIENT
  Age: 34 Year
  Sex: Female

DRUGS (4)
  1. GABAPENTIN [Concomitant]
     Route: 065
  2. SYNTHROID [Concomitant]
     Route: 065
  3. ACYCLOVIR [Concomitant]
     Route: 065
  4. NUCYNTA [Suspect]
     Indication: TRIGEMINAL NEURALGIA
     Dosage: 100 MG TWICE DAILY
     Route: 048
     Dates: start: 20110711, end: 20110718

REACTIONS (2)
  - OVERDOSE [None]
  - UNRESPONSIVE TO STIMULI [None]
